FAERS Safety Report 11649652 (Version 1)
Quarter: 2015Q4

REPORT INFORMATION
  Report Type: Spontaneous
  Country: US (occurrence: US)
  Receive Date: 20151021
  Receipt Date: 20151021
  Transmission Date: 20160304
  Serious: Yes (Other)
  Sender: FDA-Public Use
  Company Number: PHEH2015US020482

PATIENT
  Sex: Female

DRUGS (4)
  1. STOOL SOFTENER [Concomitant]
     Active Substance: DOCUSATE CALCIUM
     Indication: PRODUCT USED FOR UNKNOWN INDICATION
     Dosage: UNK
     Route: 048
  2. GLUCOSAMINE [Concomitant]
     Active Substance: GLUCOSAMINE
     Indication: PRODUCT USED FOR UNKNOWN INDICATION
     Route: 048
  3. RECLAST [Suspect]
     Active Substance: ZOLEDRONIC ACID
     Indication: PRODUCT USED FOR UNKNOWN INDICATION
     Dosage: UNK
     Route: 042
     Dates: start: 20151006
  4. VITAMIN D [Concomitant]
     Active Substance: CHOLECALCIFEROL
     Indication: PRODUCT USED FOR UNKNOWN INDICATION
     Route: 048

REACTIONS (23)
  - Neck pain [Unknown]
  - Feeling of body temperature change [Unknown]
  - Joint swelling [Unknown]
  - Pain [Unknown]
  - Arthralgia [Unknown]
  - Hypoaesthesia [Unknown]
  - Asthenia [Unknown]
  - Pruritus [Unknown]
  - Pain in extremity [Unknown]
  - Headache [Unknown]
  - Peripheral swelling [Unknown]
  - Chest pain [Unknown]
  - Nausea [Unknown]
  - Rash [Unknown]
  - Dyspnoea [Unknown]
  - Influenza like illness [Unknown]
  - Pyrexia [Unknown]
  - Muscular weakness [Unknown]
  - Swelling [Unknown]
  - Back pain [Recovering/Resolving]
  - Abdominal discomfort [Unknown]
  - Gait disturbance [Unknown]
  - Dizziness [Unknown]
